FAERS Safety Report 14536687 (Version 1)
Quarter: 2018Q1

REPORT INFORMATION
  Report Type: Spontaneous
  Country: US (occurrence: US)
  Receive Date: 20180215
  Receipt Date: 20180215
  Transmission Date: 20180509
  Serious: Yes (Hospitalization)
  Sender: FDA-Public Use
  Company Number: None

PATIENT
  Age: 63 Year
  Sex: Female
  Weight: 100.3 kg

DRUGS (9)
  1. MS CONTIN [Suspect]
     Active Substance: MORPHINE SULFATE
     Indication: PAIN
     Dosage: DATES OF USE - CHRONIC PHANTOM STUMP PAIN
     Route: 048
  2. FE [Concomitant]
     Active Substance: IRON
  3. AMLODIPINE [Concomitant]
     Active Substance: AMLODIPINE BESYLATE
  4. CETIRIZINE [Concomitant]
     Active Substance: CETIRIZINE HYDROCHLORIDE
  5. PLAVIX [Concomitant]
     Active Substance: CLOPIDOGREL BISULFATE
  6. ATORVASTATIN [Concomitant]
     Active Substance: ATORVASTATIN
  7. CLONIDINE. [Concomitant]
     Active Substance: CLONIDINE
  8. ALLOPURINOL. [Concomitant]
     Active Substance: ALLOPURINOL
  9. DRISDOL [Concomitant]
     Active Substance: ERGOCALCIFEROL

REACTIONS (6)
  - Hypercapnia [None]
  - Respiratory failure [None]
  - Encephalopathy [None]
  - Drug abuse [None]
  - Hypoxia [None]
  - Dehydration [None]

NARRATIVE: CASE EVENT DATE: 20170626
